FAERS Safety Report 10704688 (Version 1)
Quarter: 2015Q1

REPORT INFORMATION
  Report Type: Spontaneous
  Country: US (occurrence: US)
  Receive Date: 20150112
  Receipt Date: 20150112
  Transmission Date: 20150721
  Serious: No
  Sender: FDA-Public Use
  Company Number: US-GLAXOSMITHKLINE-US2014GSK046570

PATIENT
  Age: 62 Year
  Sex: Female

DRUGS (1)
  1. HYDROCHLOROTHIAZIDE + TRIAMTERENE CAPSULE [Suspect]
     Active Substance: HYDROCHLOROTHIAZIDE\TRIAMTERENE

REACTIONS (2)
  - Skin injury [Unknown]
  - Drug hypersensitivity [Unknown]
